FAERS Safety Report 6268930-6 (Version None)
Quarter: 2009Q3

REPORT INFORMATION
  Report Type: 
  Country: None (occurrence: None)
  Receive Date: 20090715
  Receipt Date: 20090703
  Transmission Date: 20100115
  Serious: Yes (Hospitalization, Other)
  Sender: FDA-Public Use
  Company Number: GB-ELI_LILLY_AND_COMPANY-GB200907000622

PATIENT
  Age: 75 Year
  Sex: Female

DRUGS (2)
  1. FLUOXETINE HCL [Suspect]
     Indication: DEPRESSION
     Dosage: UNK, UNK
     Dates: end: 20090526
  2. FLUOXETINE HCL [Suspect]
     Dosage: 40 MG, UNK
     Route: 048
     Dates: start: 20090527, end: 20090608

REACTIONS (4)
  - HEPATITIS [None]
  - LIVER FUNCTION TEST ABNORMAL [None]
  - RASH GENERALISED [None]
  - URTICARIA [None]
